FAERS Safety Report 6244463-8 (Version None)
Quarter: 2009Q2

REPORT INFORMATION
  Report Type: 
  Country: None (occurrence: None)
  Receive Date: 20090624
  Receipt Date: 20090624
  Transmission Date: 20091009
  Serious: No
  Sender: FDA-Public Use
  Company Number: None

PATIENT

DRUGS (1)
  1. ALBUTEROL 2.5MG INS 3.0 [Suspect]
     Dates: start: 20090410, end: 20090529

REACTIONS (3)
  - ANXIETY [None]
  - TACHYCARDIA [None]
  - TREMOR [None]
